FAERS Safety Report 25738654 (Version 1)
Quarter: 2025Q3

REPORT INFORMATION
  Report Type: Spontaneous
  Country: US (occurrence: US)
  Receive Date: 20250829
  Receipt Date: 20250829
  Transmission Date: 20251020
  Serious: No
  Sender: MDD OPERATIONS
  Company Number: US-002147023-MDD202507-002472

PATIENT
  Age: 62 Year
  Sex: Male
  Weight: 92.9 kg

DRUGS (5)
  1. ONAPGO [Suspect]
     Active Substance: APOMORPHINE HYDROCHLORIDE
     Indication: Parkinson^s disease
     Route: 058
     Dates: start: 20250624
  2. ONAPGO [Suspect]
     Active Substance: APOMORPHINE HYDROCHLORIDE
     Indication: On and off phenomenon
     Dosage: 98MG/20ML, INFUSE CONTENTS OF 1 CARTRIDGE UNDER THE SKIN FOR 16 HOURS OR LESS EACH DAY. CONTINUOUS D
     Route: 058
     Dates: start: 202506
  3. Xenoflexine [Concomitant]
  4. RASAGILINE [Concomitant]
     Active Substance: RASAGILINE
  5. PRAMIPEXOLE [Concomitant]
     Active Substance: PRAMIPEXOLE

REACTIONS (5)
  - Gait disturbance [Unknown]
  - Infusion site pain [Unknown]
  - Infusion site nodule [Recovered/Resolved]
  - Injection site haemorrhage [Recovered/Resolved]
  - Drug dose omission by device [Unknown]

NARRATIVE: CASE EVENT DATE: 20250701
